FAERS Safety Report 24393042 (Version 5)
Quarter: 2025Q1

REPORT INFORMATION
  Report Type: Spontaneous
  Country: US (occurrence: US)
  Receive Date: 20241003
  Receipt Date: 20250128
  Transmission Date: 20250409
  Serious: No
  Sender: SUNOVION
  Company Number: US-SMPA-2024SPA003024AA

PATIENT

DRUGS (8)
  1. ORGOVYX [Suspect]
     Active Substance: RELUGOLIX
     Indication: Prostate cancer
     Dosage: 360 MG, SINGLE
     Route: 048
     Dates: start: 202409, end: 202409
  2. ORGOVYX [Suspect]
     Active Substance: RELUGOLIX
     Dosage: 120 MG, QD
     Route: 048
     Dates: start: 202409
  3. PANTOPRAZOLE [Concomitant]
     Active Substance: PANTOPRAZOLE
     Indication: Gastrooesophageal reflux disease
     Dosage: 40 MG, QD
     Route: 065
  4. AMLODIPINE [Concomitant]
     Active Substance: AMLODIPINE BESYLATE
     Indication: Blood pressure abnormal
     Dosage: 5 MG, QD
     Route: 065
  5. DUTASTERIDE [Concomitant]
     Active Substance: DUTASTERIDE
     Indication: Prostatic disorder
     Dosage: 5 MG, QD
     Route: 065
  6. SIMVASTATIN [Concomitant]
     Active Substance: SIMVASTATIN
     Indication: Blood cholesterol abnormal
     Dosage: 40 MG, QD
     Route: 065
  7. COREG [Concomitant]
     Active Substance: CARVEDILOL
     Indication: Cardiac disorder
     Dosage: 6.2 MG, QD
     Route: 065
  8. IBUPROFEN [Concomitant]
     Active Substance: IBUPROFEN
     Route: 065

REACTIONS (5)
  - Illness [Unknown]
  - Dizziness [Recovered/Resolved]
  - Hot flush [Not Recovered/Not Resolved]
  - Insomnia [Unknown]
  - Fatigue [Unknown]
